FAERS Safety Report 8829457 (Version 1)
Quarter: 2012Q4

REPORT INFORMATION
  Report Type: Report from Study
  Country: FR (occurrence: FR)
  Receive Date: 20121008
  Receipt Date: 20121008
  Transmission Date: 20130627
  Serious: Yes (Hospitalization, Other)
  Sender: FDA-Public Use
  Company Number: FR-PFIZER INC-2012246451

PATIENT
  Age: 62 Year
  Sex: Female
  Weight: 64.5 kg

DRUGS (10)
  1. CISPLATIN [Suspect]
     Dosage: 75 mg/m2, UNK
     Route: 048
     Dates: start: 20120411, end: 20120524
  2. CISPLATIN [Suspect]
     Dosage: 75 mg/m2, UNK
     Route: 048
  3. GEMCITABINE HYDROCHLORIDE [Suspect]
     Dosage: 1250 mg/m2, UNK
     Route: 048
     Dates: start: 20120411, end: 20120524
  4. CEP-9722 [Suspect]
     Dosage: 300 mg, 2x/day
     Route: 048
     Dates: start: 20120504, end: 20120530
  5. CEP-9722 [Suspect]
     Dosage: 300 mg, 2x/day
     Route: 048
  6. EMEND [Concomitant]
     Dosage: 125 mg, 1x/day
     Route: 048
     Dates: start: 20120503, end: 20120503
  7. EMEND [Concomitant]
     Dosage: 80 mg, 1x/day
     Route: 048
     Dates: start: 20120504, end: 20120505
  8. EMEND [Concomitant]
     Dosage: 125 mg, 1x/day
     Route: 048
     Dates: start: 20120524, end: 20120526
  9. EFFEXOR [Concomitant]
     Indication: DEPRESSIVE SYMPTOM
     Dosage: UNK
     Dates: start: 1991
  10. LEXOMIL [Concomitant]
     Dosage: 12 mg, daily
     Dates: start: 20120417

REACTIONS (2)
  - Depression [Recovered/Resolved with Sequelae]
  - Suicidal ideation [Recovered/Resolved with Sequelae]
